FAERS Safety Report 9090078 (Version 1)
Quarter: 2013Q1

REPORT INFORMATION
  Report Type: Report from Study
  Country: US (occurrence: US)
  Receive Date: 20130201
  Receipt Date: 20130201
  Transmission Date: 20140127
  Serious: No
  Sender: FDA-Public Use
  Company Number: US-ABBOTT-12P-163-1023580-00

PATIENT
  Age: 34 Year
  Sex: Female

DRUGS (5)
  1. HUMIRA [Suspect]
     Indication: CROHN^S DISEASE
     Route: 058
  2. ASACOL [Concomitant]
     Indication: CROHN^S DISEASE
     Route: 048
  3. IMURAN [Concomitant]
     Indication: CROHN^S DISEASE
     Dosage: 3 TABLETS DAILY
     Route: 048
  4. LANSOPRAZOLE [Concomitant]
     Indication: ABDOMINAL DISCOMFORT
     Dosage: 30MG DAILY
     Route: 048
  5. LANSOPRAZOLE [Concomitant]
     Indication: ABDOMINAL DISCOMFORT

REACTIONS (2)
  - Wrong technique in drug usage process [Recovered/Resolved]
  - Injection site reaction [Not Recovered/Not Resolved]
